FAERS Safety Report 6271378-1 (Version None)
Quarter: 2009Q4

REPORT INFORMATION
  Report Type: 
  Country: None (occurrence: None)
  Receive Date: 20090717
  Receipt Date: 20090716
  Transmission Date: 20100525
  Serious: Yes (Death, Life-Threatening, Hospitalization)
  Sender: FDA-Public Use
  Company Number: DE-B.I. PHARMACEUTICALS,INC./RIDGEFIELD-2009-DE-04920DE

PATIENT
  Age: 85 Year
  Sex: Male

DRUGS (6)
  1. AGGRENOX [Suspect]
     Indication: CEREBROVASCULAR ACCIDENT
     Dosage: 2 ANZ
     Route: 048
     Dates: start: 20080501, end: 20080717
  2. CAPTOPRIL AND HYDROCHLOROTHIAZIDE [Suspect]
     Indication: HYPERTENSION
     Dosage: 2 ANZ
     Route: 048
     Dates: start: 20080501, end: 20080717
  3. MADOPAR [Suspect]
     Indication: CEREBROVASCULAR ACCIDENT
     Dosage: 3 ANZ
     Route: 048
     Dates: end: 20080720
  4. TRIAMTERENE W/ HYDROCHLOROTHIAZIDE [Suspect]
     Indication: HYPERTENSION
     Dosage: 1 ANZ
     Route: 048
     Dates: end: 20080717
  5. EXELON [Concomitant]
     Indication: DEMENTIA
     Dosage: 2 NR
     Route: 048
     Dates: end: 20080720
  6. METFORMIN HYDROCHLORIDE [Concomitant]
     Indication: TYPE 2 DIABETES MELLITUS
     Dosage: 2 NR
     Route: 048
     Dates: end: 20080717

REACTIONS (4)
  - HYPERNATRAEMIA [None]
  - METABOLIC ACIDOSIS [None]
  - RENAL FAILURE ACUTE [None]
  - THROMBOCYTOPENIA [None]
